FAERS Safety Report 8003150-6 (Version None)
Quarter: 2011Q4

REPORT INFORMATION
  Report Type: 
  Country: None (occurrence: None)
  Receive Date: 20111222
  Receipt Date: 20111213
  Transmission Date: 20120403
  Serious: Yes (Other)
  Sender: FDA-Public Use
  Company Number: PHHO2011FI019876

PATIENT
  Sex: Female
  Weight: 61 kg

DRUGS (10)
  1. DIAZEPAM [Concomitant]
     Indication: DEPRESSION
     Dosage: 5 MG, PRN
     Route: 048
     Dates: start: 20011001
  2. IBUMAX [Concomitant]
     Indication: HEADACHE
     Dosage: UNK
     Dates: start: 20060401
  3. ZOPINOX [Concomitant]
     Indication: SLEEP DISORDER
     Dosage: 7.5 MG, PRN
     Route: 048
     Dates: start: 20080128
  4. DICLOFENAC SODIUM [Concomitant]
     Indication: LIGAMENT SPRAIN
     Dosage: UNK
     Dates: start: 20091220, end: 20091227
  5. PANACOD [Concomitant]
     Indication: MUSCULOSKELETAL PAIN
     Dosage: UNK
     Dates: start: 20070602
  6. COLDREX [Concomitant]
     Indication: NASOPHARYNGITIS
     Dosage: UNK
     Dates: start: 20090604, end: 20090614
  7. NORTRIPTYLINE HCL [Concomitant]
     Indication: EPICONDYLITIS
     Dosage: UNK
     Dates: start: 20091204, end: 20091214
  8. FTY [Suspect]
     Indication: MULTIPLE SCLEROSIS
     Dosage: 0.5 MG, QD
     Route: 048
     Dates: start: 20101120, end: 20111129
  9. ARDINEX [Concomitant]
     Indication: MUSCULOSKELETAL PAIN
     Dosage: 200/30 MG, PRN
     Route: 048
     Dates: start: 20080501
  10. SEPRAM [Concomitant]
     Indication: DEPRESSION
     Dosage: 20 MG, BID
     Route: 048
     Dates: start: 20060511

REACTIONS (1)
  - COLON CANCER STAGE II [None]
